FAERS Safety Report 4851372-5 (Version None)
Quarter: 2005Q4

REPORT INFORMATION
  Report Type: 
  Country: None (occurrence: None)
  Receive Date: 20051208
  Receipt Date: 20051121
  Transmission Date: 20060501
  Serious: Yes (Death, Hospitalization)
  Sender: FDA-Public Use
  Company Number: GBS050918579

PATIENT
  Age: 63 Year
  Sex: Female
  Weight: 50 kg

DRUGS (11)
  1. FORTEO [Suspect]
     Indication: OSTEOPOROSIS
     Dosage: 20 UG, DAILY (1/D);
     Dates: start: 20041013
  2. FORTEO PEN, 250MCG/ML (3ML) [Concomitant]
  3. COMBIVENT/GFR/(IPRATROPIUM BROMIDE, SALBUTAMOL SULFATE) [Concomitant]
  4. CITALOPRAM HYDROBROMIDE [Concomitant]
  5. OXYGEN [Concomitant]
  6. PREDNISOLONE [Concomitant]
  7. FRUSEMIDE [Concomitant]
  8. THEOPHYLLINE - SLOW RELEASE ^UNS^ (THEOPHYLLINE) [Concomitant]
  9. TIBOLONE [Concomitant]
  10. RAMIPRIL [Concomitant]
  11. CALCICHEW-D3 (CALCIUM CARBONATE, COLECALCIFEROL) [Concomitant]

REACTIONS (1)
  - CARBON MONOXIDE POISONING [None]
